FAERS Safety Report 4361286-5 (Version None)
Quarter: 2004Q2

REPORT INFORMATION
  Report Type: 
  Country: None (occurrence: None)
  Receive Date: 20040520
  Receipt Date: 20040507
  Transmission Date: 20050107
  Serious: Yes (Hospitalization)
  Sender: FDA-Public Use
  Company Number: BE-GLAXOSMITHKLINE-B0332456A

PATIENT
  Sex: Female

DRUGS (1)
  1. ZYBAN [Suspect]

REACTIONS (2)
  - ACCIDENTAL EXPOSURE [None]
  - NERVOUS SYSTEM DISORDER [None]
